FAERS Safety Report 15540047 (Version 6)
Quarter: 2021Q2

REPORT INFORMATION
  Report Type: Report from Study
  Country: US (occurrence: US)
  Receive Date: 20181023
  Receipt Date: 20210630
  Transmission Date: 20210716
  Serious: Yes (Hospitalization)
  Sender: FDA-Public Use
  Company Number: PHHY2018US129679

PATIENT
  Age: 64 Year
  Sex: Male

DRUGS (5)
  1. COSENTYX [Suspect]
     Active Substance: SECUKINUMAB
     Indication: PSORIATIC ARTHROPATHY
     Dosage: UNK
     Route: 065
     Dates: start: 20170301
  2. COSENTYX [Suspect]
     Active Substance: SECUKINUMAB
     Dosage: UNK
     Route: 065
     Dates: start: 20170401
  3. COSENTYX [Suspect]
     Active Substance: SECUKINUMAB
     Dosage: 300 MG, QMO
     Route: 058
  4. COSENTYX [Suspect]
     Active Substance: SECUKINUMAB
     Dosage: 300 MG, UNK
     Route: 065
     Dates: start: 20180731
  5. COSENTYX [Suspect]
     Active Substance: SECUKINUMAB
     Dosage: UNK
     Route: 058
     Dates: start: 2017

REACTIONS (19)
  - Arthralgia [Unknown]
  - Nervousness [Unknown]
  - Insomnia [Unknown]
  - Pain [Unknown]
  - Movement disorder [Unknown]
  - General physical health deterioration [Unknown]
  - Contusion [Unknown]
  - Skin haemorrhage [Unknown]
  - Limb deformity [Unknown]
  - Mobility decreased [Unknown]
  - Discomfort [Unknown]
  - Dry mouth [Unknown]
  - Cellulitis [Recovered/Resolved]
  - Pain in extremity [Unknown]
  - Drug ineffective [Unknown]
  - Arthritis [Unknown]
  - Illness [Unknown]
  - Device malfunction [Unknown]
  - Incorrect dose administered [Unknown]

NARRATIVE: CASE EVENT DATE: 20180731
